FAERS Safety Report 4495158-2 (Version None)
Quarter: 2004Q4

REPORT INFORMATION
  Report Type: 
  Country: None (occurrence: None)
  Receive Date: 20041105
  Receipt Date: 20041105
  Transmission Date: 20050328
  Serious: Yes (Hospitalization)
  Sender: FDA-Public Use
  Company Number: None

PATIENT
  Age: 44 Year
  Sex: Female
  Weight: 52.7 kg

DRUGS (6)
  1. OXALIPLATIN [Suspect]
     Indication: PANCREATIC CARCINOMA
     Dosage: 130 MG/M2
     Dates: start: 20041014
  2. DOCETAXEL [Suspect]
     Indication: PANCREATIC CARCINOMA
     Dosage: 325 MG /M2
     Dates: start: 20041014
  3. DOCETAXEL [Suspect]
     Indication: PANCREATIC CARCINOMA
     Dosage: 325 MG /M2
     Dates: start: 20041021
  4. LOVENOX [Concomitant]
  5. FENTANYL [Concomitant]
  6. PERCOCET-5 [Concomitant]

REACTIONS (3)
  - CULTURE URINE POSITIVE [None]
  - HYPOTENSION [None]
  - PYREXIA [None]
